FAERS Safety Report 4771909-4 (Version None)
Quarter: 2005Q3

REPORT INFORMATION
  Report Type: 
  Country: None (occurrence: None)
  Receive Date: 20050916
  Receipt Date: 20050913
  Transmission Date: 20060218
  Serious: Yes (Hospitalization)
  Sender: FDA-Public Use
  Company Number: US-JNJFOC-20050506155

PATIENT
  Age: 36 Year
  Sex: Male
  Weight: 81.8 kg

DRUGS (5)
  1. PAXIL CR [Suspect]
     Indication: MAJOR DEPRESSION
     Dosage: 37.5MG AT NIGHT
     Route: 048
     Dates: start: 20050301
  2. RISPERDAL [Suspect]
     Indication: MAJOR DEPRESSION
     Dosage: 2.5MG THREE TIMES PER DAY
     Route: 065
     Dates: start: 20050301
  3. LORAZEPAM [Concomitant]
     Route: 065
  4. ULTRAM [Concomitant]
     Route: 065
  5. HYDROCODONE [Concomitant]
     Route: 065

REACTIONS (4)
  - DYSTONIA [None]
  - FALL [None]
  - MUSCLE NECROSIS [None]
  - NECK INJURY [None]
